FAERS Safety Report 7290345-2 (Version None)
Quarter: 2011Q1

REPORT INFORMATION
  Report Type: 
  Country: None (occurrence: None)
  Receive Date: 20110214
  Receipt Date: 20110210
  Transmission Date: 20110831
  Serious: Yes (Other)
  Sender: FDA-Public Use
  Company Number: US-PFIZER INC-2011030934

PATIENT
  Sex: Female

DRUGS (4)
  1. NEURONTIN [Suspect]
     Indication: PAIN
     Dosage: 100 MG, 1X/DAY
  2. NEURONTIN [Suspect]
     Dosage: 100 MG, 3X/DAY
  3. KLONOPIN [Suspect]
     Dosage: 0.5 MG, 1X/DAY
  4. NEURONTIN [Suspect]
     Dosage: 100 MG, 2X/DAY

REACTIONS (9)
  - GAIT DISTURBANCE [None]
  - DYSPEPSIA [None]
  - JOINT SWELLING [None]
  - DIZZINESS [None]
  - TENDINOUS CONTRACTURE [None]
  - GAIT SPASTIC [None]
  - VISION BLURRED [None]
  - PAIN [None]
  - COORDINATION ABNORMAL [None]
